FAERS Safety Report 8431798-3 (Version None)
Quarter: 2012Q2

REPORT INFORMATION
  Report Type: 
  Country: None (occurrence: None)
  Receive Date: 20120607
  Receipt Date: 20120607
  Transmission Date: 20120825
  Serious: No
  Sender: FDA-Public Use
  Company Number: None

PATIENT
  Sex: Male
  Weight: 80 kg

DRUGS (2)
  1. CARBOPLATIN [Suspect]
     Dosage: 740 MG
  2. TAXOL [Suspect]
     Dosage: 408 MG

REACTIONS (2)
  - COUGH [None]
  - HAEMOPTYSIS [None]
